FAERS Safety Report 8578761-X (Version None)
Quarter: 2012Q3

REPORT INFORMATION
  Report Type: 
  Country: None (occurrence: None)
  Receive Date: 20120808
  Receipt Date: 20120731
  Transmission Date: 20120928
  Serious: Yes (Other)
  Sender: FDA-Public Use
  Company Number: JP-VERTEX PHARMACEUTICALS INC.-AE-2012-004521

PATIENT
  Age: 50 Year
  Sex: Male

DRUGS (13)
  1. RIBAVIRIN [Concomitant]
     Route: 048
     Dates: start: 20120221
  2. RIBAVIRIN [Concomitant]
     Route: 048
     Dates: start: 20120626, end: 20120723
  3. PEGINTERFERON ALFA-2A [Concomitant]
     Route: 058
     Dates: start: 20120221, end: 20120717
  4. RIBAVIRIN [Concomitant]
     Route: 048
     Dates: start: 20120327
  5. RIBAVIRIN [Concomitant]
     Route: 048
     Dates: end: 20120528
  6. MICARDIS [Concomitant]
     Route: 048
  7. MICARDIS [Concomitant]
     Route: 048
     Dates: end: 20120717
  8. FEBURIC [Concomitant]
     Route: 048
  9. PEGINTERFERON ALFA-2A [Concomitant]
     Indication: HEPATITIS C
     Route: 058
     Dates: start: 20120207, end: 20120220
  10. RIBAVIRIN [Concomitant]
     Indication: HEPATITIS C
     Route: 048
     Dates: start: 20120207, end: 20120220
  11. RIBAVIRIN [Concomitant]
     Route: 048
     Dates: start: 20120529, end: 20120625
  12. TELAVIC (TELAPREVIR) [Suspect]
     Indication: HEPATITIS C
     Route: 048
     Dates: start: 20120207
  13. RIBAVIRIN [Concomitant]
     Route: 048
     Dates: start: 20120320

REACTIONS (1)
  - NEUTROPHIL COUNT DECREASED [None]
